FAERS Safety Report 6862281-4 (Version None)
Quarter: 2010Q3

REPORT INFORMATION
  Report Type: 
  Country: None (occurrence: None)
  Receive Date: 20100721
  Receipt Date: 20100618
  Transmission Date: 20110219
  Serious: No
  Sender: FDA-Public Use
  Company Number: US-BAYER-201017319BCC

PATIENT
  Sex: Female

DRUGS (1)
  1. FINACEA [Suspect]
     Indication: ROSACEA
     Route: 061

REACTIONS (1)
  - BURNING SENSATION [None]
